FAERS Safety Report 24760709 (Version 2)
Quarter: 2025Q1

REPORT INFORMATION
  Report Type: Spontaneous
  Country: CA (occurrence: CA)
  Receive Date: 20241220
  Receipt Date: 20250213
  Transmission Date: 20250409
  Serious: Yes (Other)
  Sender: PFIZER
  Company Number: CA-PFIZER INC-202300445472

PATIENT
  Age: 61 Year
  Sex: Female
  Weight: 113.37 kg

DRUGS (14)
  1. RUXIENCE [Suspect]
     Active Substance: RITUXIMAB-PVVR
     Indication: Granulomatosis with polyangiitis
     Route: 042
     Dates: start: 20240108, end: 20240122
  2. BASAGLAR [Concomitant]
     Active Substance: INSULIN GLARGINE
  3. CALCIUM CARBONATE [Concomitant]
     Active Substance: CALCIUM CARBONATE
     Dosage: 500 MG, 3X/DAY
     Route: 048
  4. DOMPERIDONE [Concomitant]
     Active Substance: DOMPERIDONE
  5. LINAGLIPTIN [Concomitant]
     Active Substance: LINAGLIPTIN
     Dosage: 5 MG, 1X/DAY
     Route: 048
  6. METOCLOPRAMIDE [Concomitant]
     Active Substance: METOCLOPRAMIDE
  7. ONDANSETRON [Concomitant]
     Active Substance: ONDANSETRON
  8. PREDNISONE [Concomitant]
     Active Substance: PREDNISONE
  9. RABEPRAZOLE [Concomitant]
     Active Substance: RABEPRAZOLE
  10. RENAL [Concomitant]
     Indication: Vitamin supplementation
  11. SULFAMETHOXAZOLE\TRIMETHOPRIM [Concomitant]
     Active Substance: SULFAMETHOXAZOLE\TRIMETHOPRIM
  12. DILTIAZEM HYDROCHLORIDE [Concomitant]
     Active Substance: DILTIAZEM HYDROCHLORIDE
  13. VITAMIN D3 [Concomitant]
     Active Substance: CHOLECALCIFEROL
  14. DILTIAZEM [Concomitant]
     Active Substance: DILTIAZEM
     Dosage: 180 MG, 1X/DAY
     Route: 048

REACTIONS (20)
  - Deafness unilateral [Not Recovered/Not Resolved]
  - Gastrointestinal disorder [Unknown]
  - Vomiting [Not Recovered/Not Resolved]
  - Muscle spasms [Unknown]
  - Skin discolouration [Unknown]
  - Hyperparathyroidism primary [Unknown]
  - Rhinorrhoea [Unknown]
  - Ear discomfort [Unknown]
  - Hypoacusis [Unknown]
  - Retinal disorder [Unknown]
  - Hyperparathyroidism secondary [Unknown]
  - Weight decreased [Not Recovered/Not Resolved]
  - Nausea [Recovered/Resolved]
  - Condition aggravated [Unknown]
  - Arthralgia [Unknown]
  - Paraesthesia [Unknown]
  - Antineutrophil cytoplasmic antibody increased [Unknown]
  - Weight decreased [Unknown]
  - Blood pressure systolic increased [Unknown]
  - Off label use [Unknown]

NARRATIVE: CASE EVENT DATE: 20240101
